FAERS Safety Report 24129810 (Version 1)
Quarter: 2024Q3

REPORT INFORMATION
  Report Type: Spontaneous
  Country: CN (occurrence: CN)
  Receive Date: 20240724
  Receipt Date: 20240724
  Transmission Date: 20241017
  Serious: Yes (Other)
  Sender: PFIZER
  Company Number: CN-PFIZER INC-PV202400094929

PATIENT
  Age: 37 Year
  Sex: Female
  Weight: 61 kg

DRUGS (2)
  1. CYTARABINE [Suspect]
     Active Substance: CYTARABINE
     Indication: Chemotherapy
     Dosage: 3.000 G, 2X/DAY ^EVERY OTHER DAY^
     Route: 041
     Dates: start: 20240709, end: 20240713
  2. CYTARABINE [Suspect]
     Active Substance: CYTARABINE
     Indication: Acute myeloid leukaemia

REACTIONS (7)
  - Diarrhoea [Recovering/Resolving]
  - Rash pruritic [Recovering/Resolving]
  - Gastrointestinal infection [Unknown]
  - Nausea [Recovering/Resolving]
  - Vomiting [Recovering/Resolving]
  - Dysbiosis [Unknown]
  - Off label use [Unknown]

NARRATIVE: CASE EVENT DATE: 20240701
